FAERS Safety Report 15688981 (Version 1)
Quarter: 2018Q4

REPORT INFORMATION
  Report Type: Report from Study
  Country: None (occurrence: CA)
  Receive Date: 20181205
  Receipt Date: 20181205
  Transmission Date: 20190205
  Serious: Yes (Hospitalization)
  Sender: FDA-Public Use
  Company Number: CA-ABBVIE-18K-028-2575556-00

PATIENT
  Age: 55 Year
  Sex: Female

DRUGS (1)
  1. HUMIRA [Suspect]
     Active Substance: ADALIMUMAB
     Indication: PSORIATIC ARTHROPATHY
     Route: 058
     Dates: start: 20180823

REACTIONS (6)
  - Diarrhoea [Unknown]
  - Dermatitis acneiform [Unknown]
  - Pruritus [Unknown]
  - Vomiting [Unknown]
  - Bone pain [Unknown]
  - Campylobacter gastroenteritis [Unknown]

NARRATIVE: CASE EVENT DATE: 201811
